FAERS Safety Report 12278802 (Version 2)
Quarter: 2016Q2

REPORT INFORMATION
  Report Type: Spontaneous
  Country: CN (occurrence: CN)
  Receive Date: 20160418
  Receipt Date: 20160429
  Transmission Date: 20160815
  Serious: Yes (Life-Threatening)
  Sender: FDA-Public Use
  Company Number: CN-ABBVIE-16P-035-1607555-00

PATIENT
  Sex: Male

DRUGS (4)
  1. DEPAKINE CHRONO [Suspect]
     Active Substance: VALPROATE SODIUM
     Indication: BIPOLAR DISORDER
     Route: 048
     Dates: start: 2014, end: 2014
  2. VENLAFAXINE HYDROCHLORIDE. [Concomitant]
     Active Substance: VENLAFAXINE HYDROCHLORIDE
     Indication: PRODUCT USED FOR UNKNOWN INDICATION
     Dosage: 75-150MG
     Dates: start: 2014, end: 2014
  3. QUETIAPINE. [Concomitant]
     Active Substance: QUETIAPINE
     Indication: PRODUCT USED FOR UNKNOWN INDICATION
     Dosage: QN
     Dates: start: 2014, end: 2014
  4. LORAZEPAM. [Concomitant]
     Active Substance: LORAZEPAM
     Indication: PRODUCT USED FOR UNKNOWN INDICATION
     Dosage: QN
     Dates: start: 2014, end: 2014

REACTIONS (20)
  - Erythema [Recovered/Resolved]
  - Somnolence [Recovered/Resolved]
  - Tremor [Recovered/Resolved]
  - Hypokalaemia [Recovered/Resolved]
  - Restlessness [Recovered/Resolved]
  - Tenderness [Recovered/Resolved]
  - Hyperammonaemic encephalopathy [Recovered/Resolved]
  - Abnormal dreams [Recovered/Resolved]
  - Loss of consciousness [Recovered/Resolved]
  - Electrocardiogram abnormal [Recovered/Resolved]
  - Gout [Recovered/Resolved]
  - Electroencephalogram abnormal [Recovered/Resolved]
  - Emotional disorder [Recovered/Resolved]
  - Swelling [Recovered/Resolved]
  - Muscular weakness [Recovered/Resolved]
  - Extensor plantar response [Recovered/Resolved]
  - Affective disorder [Recovered/Resolved]
  - Slow response to stimuli [Recovered/Resolved]
  - Asthenia [Recovered/Resolved]
  - Ataxia [Recovered/Resolved]

NARRATIVE: CASE EVENT DATE: 2014
